FAERS Safety Report 25758094 (Version 2)
Quarter: 2025Q3

REPORT INFORMATION
  Report Type: Spontaneous
  Country: IN (occurrence: IN)
  Receive Date: 20250903
  Receipt Date: 20250911
  Transmission Date: 20251020
  Serious: Yes (Disabling, Other)
  Sender: CIPLA
  Company Number: IN-CIPLA LTD.-2025IN10825

PATIENT

DRUGS (2)
  1. CARBOPLATIN [Suspect]
     Active Substance: CARBOPLATIN
     Indication: Non-small cell lung cancer
     Route: 042
  2. PEMETREXED [Concomitant]
     Active Substance: PEMETREXED
     Indication: Non-small cell lung cancer
     Route: 065

REACTIONS (1)
  - Optic ischaemic neuropathy [Recovering/Resolving]
